FAERS Safety Report 8542973-1 (Version None)
Quarter: 2012Q3

REPORT INFORMATION
  Report Type: 
  Country: None (occurrence: None)
  Receive Date: 20120727
  Receipt Date: 20120723
  Transmission Date: 20120928
  Serious: No
  Sender: FDA-Public Use
  Company Number: US-PFIZER INC-2012178484

PATIENT
  Sex: Female

DRUGS (2)
  1. FISH OIL [Concomitant]
     Dosage: UNK
     Dates: end: 20120701
  2. AROMASIN [Suspect]
     Dosage: 25 MG, DAILY
     Dates: start: 20120201

REACTIONS (1)
  - RASH MACULAR [None]
